FAERS Safety Report 16916627 (Version 1)
Quarter: 2019Q4

REPORT INFORMATION
  Report Type: Report from Study
  Country: US (occurrence: US)
  Receive Date: 20191014
  Receipt Date: 20191014
  Transmission Date: 20200122
  Serious: Yes (Other)
  Sender: FDA-Public Use
  Company Number: US-TEVA-2019-US-1121676

PATIENT

DRUGS (2)
  1. ISONIAZID. [Suspect]
     Active Substance: ISONIAZID
     Indication: LATENT TUBERCULOSIS
     Dosage: ONCE WEEKLY DOSES FOR 12 WEEKS (I.E. FOR 3 MONTHS)
     Route: 065
  2. RIFAPENTINE [Suspect]
     Active Substance: RIFAPENTINE
     Indication: LATENT TUBERCULOSIS
     Dosage: ONCE WEEKLY DOSES FOR 12 WEEKS (I.E. FOR 3 MONTHS)
     Route: 065

REACTIONS (1)
  - Hepatotoxicity [Unknown]
